FAERS Safety Report 4654230-4 (Version None)
Quarter: 2005Q2

REPORT INFORMATION
  Report Type: 
  Country: None (occurrence: None)
  Receive Date: 20050504
  Receipt Date: 20050421
  Transmission Date: 20051028
  Serious: Yes (Hospitalization, Other)
  Sender: FDA-Public Use
  Company Number: 2004106945

PATIENT
  Age: 68 Year
  Sex: Male

DRUGS (5)
  1. ZOLOFT [Suspect]
     Indication: AGITATION
     Dosage: 50 MG (50 MG, 1 IN 1 D), ORAL
     Route: 048
     Dates: start: 20040101
  2. ZOLOFT [Suspect]
     Indication: ANGER
     Dosage: 50 MG (50 MG, 1 IN 1 D), ORAL
     Route: 048
     Dates: start: 20040101
  3. ARICEPT [Suspect]
     Indication: AMNESIA
     Dosage: 5 MG (50 MG, 1 IN 1 D), ORAL
     Route: 048
     Dates: start: 20041001
  4. CLOPIDOGREL BISULFATE [Concomitant]
  5. ASPIRIN [Concomitant]

REACTIONS (6)
  - CEREBROVASCULAR ACCIDENT [None]
  - DEMENTIA ALZHEIMER'S TYPE [None]
  - DIARRHOEA [None]
  - MYALGIA [None]
  - NAUSEA [None]
  - PAIN [None]
